FAERS Safety Report 24260536 (Version 1)
Quarter: 2024Q3

REPORT INFORMATION
  Report Type: Report from Study
  Country: US (occurrence: US)
  Receive Date: 20240828
  Receipt Date: 20240828
  Transmission Date: 20241016
  Serious: No
  Sender: INCYTE
  Company Number: US-INCYTE CORPORATION-2024IN008491

PATIENT

DRUGS (1)
  1. JAKAFI [Suspect]
     Active Substance: RUXOLITINIB
     Indication: Polycythaemia vera
     Dosage: 10MG IN THE MORNING AND 15MG AT NIGHT
     Route: 065

REACTIONS (2)
  - Onychoclasis [Unknown]
  - Nail ridging [Unknown]

NARRATIVE: CASE EVENT DATE: 20231201
